FAERS Safety Report 6087328-7 (Version None)
Quarter: 2009Q1

REPORT INFORMATION
  Report Type: 
  Country: None (occurrence: None)
  Receive Date: 20090219
  Receipt Date: 20090205
  Transmission Date: 20090719
  Serious: Yes (Hospitalization)
  Sender: FDA-Public Use
  Company Number: 430008K09USA

PATIENT
  Age: 55 Year
  Sex: Male

DRUGS (2)
  1. NOVANTRONE [Suspect]
     Indication: MULTIPLE SCLEROSIS
     Dates: start: 20060201, end: 20080201
  2. COPAXONE [Suspect]
     Indication: MULTIPLE SCLEROSIS
     Dosage: 20 MCG, NOT REPORTED, SUBCUTANEOUS
     Route: 058
     Dates: start: 20000103

REACTIONS (1)
  - ACUTE PROMYELOCYTIC LEUKAEMIA [None]
